FAERS Safety Report 8525482-5 (Version None)
Quarter: 2012Q3

REPORT INFORMATION
  Report Type: 
  Country: None (occurrence: None)
  Receive Date: 20120720
  Receipt Date: 20120712
  Transmission Date: 20120928
  Serious: Yes (Hospitalization)
  Sender: FDA-Public Use
  Company Number: SE-JNJFOC-20120707869

PATIENT
  Sex: Female

DRUGS (4)
  1. ASACOL [Concomitant]
     Route: 065
  2. IMURAN [Concomitant]
     Route: 065
  3. REMICADE [Suspect]
     Indication: COLITIS ULCERATIVE
     Route: 042
     Dates: start: 20111201, end: 20120507
  4. PREDNISOLONE [Concomitant]
     Route: 065

REACTIONS (1)
  - SKIN REACTION [None]
